FAERS Safety Report 6239351-7 (Version None)
Quarter: 2009Q2

REPORT INFORMATION
  Report Type: 
  Country: None (occurrence: None)
  Receive Date: 20090618
  Receipt Date: 20090618
  Transmission Date: 20091009
  Serious: Yes (Other)
  Sender: FDA-Public Use
  Company Number: None

PATIENT
  Age: 37 Year
  Sex: Male
  Weight: 97.5234 kg

DRUGS (1)
  1. ZICAM NASAL SWABS ZICAM [Suspect]
     Indication: NASOPHARYNGITIS
     Dosage: ONE SWAB APPROX EVERY 12HRS NASAL
     Route: 045
     Dates: start: 20090613, end: 20090614

REACTIONS (1)
  - HYPOSMIA [None]
